FAERS Safety Report 10065197 (Version 1)
Quarter: 2014Q1

REPORT INFORMATION
  Report Type: Spontaneous
  Country: US (occurrence: None)
  Receive Date: 20140328
  Receipt Date: 20140328
  Transmission Date: 20141002
  Serious: No
  Sender: FDA-Public Use
  Company Number: 1000060299

PATIENT
  Sex: Female

DRUGS (6)
  1. LINZESS (LINACLOTIDE) [Suspect]
     Dates: start: 20140207
  2. LINZESS (LINACLOTIDE) [Concomitant]
  3. LAXATIVE (NOS) [Concomitant]
  4. SENOKOT (SENOKOT) [Concomitant]
  5. OXYCONTIN (OXYCODONE HYDROCHLORIDE) [Concomitant]
  6. OXYCODONE (OXYCODONE) [Concomitant]

REACTIONS (1)
  - Drug ineffective [None]
